FAERS Safety Report 8501305-5 (Version None)
Quarter: 2012Q3

REPORT INFORMATION
  Report Type: 
  Country: None (occurrence: None)
  Receive Date: 20120710
  Receipt Date: 20120708
  Transmission Date: 20120928
  Serious: No
  Sender: FDA-Public Use
  Company Number: US-PFIZER INC-2012163345

PATIENT
  Sex: Female

DRUGS (3)
  1. DIAZEPAM [Interacting]
     Dosage: UNK, DAILY
  2. LORAZEPAM [Concomitant]
     Dosage: UNK, DAILY
  3. NEURONTIN [Suspect]
     Indication: NEUROMA
     Dosage: UNK

REACTIONS (4)
  - FATIGUE [None]
  - FEELING ABNORMAL [None]
  - DRUG INTERACTION [None]
  - SOMNOLENCE [None]
